FAERS Safety Report 16255772 (Version 1)
Quarter: 2019Q2

REPORT INFORMATION
  Report Type: Spontaneous
  Country: IR (occurrence: IR)
  Receive Date: 20190430
  Receipt Date: 20190430
  Transmission Date: 20190711
  Serious: Yes (Life-Threatening, Hospitalization, Other)
  Sender: FDA-Public Use
  Company Number: IR-PURDUE-GBR-2019-0066107

PATIENT
  Age: 43 Year
  Sex: Male

DRUGS (2)
  1. NON-PMN BUPRENORPHINE [Suspect]
     Active Substance: BUPRENORPHINE
     Indication: DRUG DEPENDENCE
     Dosage: 5 MG, DAILY
     Route: 048
  2. NON-PMN BUPRENORPHINE [Suspect]
     Active Substance: BUPRENORPHINE
     Indication: PROPHYLAXIS

REACTIONS (1)
  - Myocardial infarction [Recovered/Resolved]
